FAERS Safety Report 20009209 (Version 4)
Quarter: 2022Q1

REPORT INFORMATION
  Report Type: Report from Study
  Country: CA (occurrence: CA)
  Receive Date: 20211029
  Receipt Date: 20220105
  Transmission Date: 20220424
  Serious: Yes (Hospitalization, Other)
  Sender: FDA-Public Use
  Company Number: CA-JNJFOC-20211005379

PATIENT
  Age: 76 Year
  Sex: Male

DRUGS (10)
  1. MACITENTAN [Suspect]
     Active Substance: MACITENTAN
     Indication: Pulmonary hypertension
     Route: 048
     Dates: start: 20210930
  2. MACITENTAN [Suspect]
     Active Substance: MACITENTAN
     Route: 048
     Dates: start: 20211005, end: 20211205
  3. LIPITOR [Concomitant]
     Active Substance: ATORVASTATIN CALCIUM
  4. ATACAND [Concomitant]
     Active Substance: CANDESARTAN CILEXETIL
  5. ALDACTONE [Concomitant]
     Active Substance: SPIRONOLACTONE
  6. ELIQUIS [Concomitant]
     Active Substance: APIXABAN
  7. VITAMIN B12 [Concomitant]
     Active Substance: CYANOCOBALAMIN
  8. SANTOSS [Concomitant]
  9. OMEPRAZOLE [Concomitant]
     Active Substance: OMEPRAZOLE
  10. SPIRONOLACTONE [Concomitant]
     Active Substance: SPIRONOLACTONE

REACTIONS (9)
  - Chills [Not Recovered/Not Resolved]
  - Oxygen saturation decreased [Unknown]
  - Pleural effusion [Unknown]
  - Oedema peripheral [Unknown]
  - Hypotension [Unknown]
  - Drug ineffective [Unknown]
  - Pulmonary hypertension [Not Recovered/Not Resolved]
  - Off label use [Unknown]
  - Product use issue [Unknown]

NARRATIVE: CASE EVENT DATE: 20210930
